FAERS Safety Report 22070068 (Version 1)
Quarter: 2023Q1

REPORT INFORMATION
  Report Type: Spontaneous
  Country: HR (occurrence: HR)
  Receive Date: 20230307
  Receipt Date: 20230307
  Transmission Date: 20230417
  Serious: Yes (Other)
  Sender: FDA-Public Use
  Company Number: HR-BAYER-2023A025498

PATIENT
  Sex: Female

DRUGS (2)
  1. STIVARGA [Suspect]
     Active Substance: REGORAFENIB
     Dosage: 160 MG
  2. STIVARGA [Suspect]
     Active Substance: REGORAFENIB
     Dosage: 120 MG

REACTIONS (4)
  - Supportive care [None]
  - Fatigue [None]
  - General physical health deterioration [None]
  - Tumour marker increased [None]
